FAERS Safety Report 17051911 (Version 1)
Quarter: 2019Q4

REPORT INFORMATION
  Report Type: Spontaneous
  Country: KR (occurrence: KR)
  Receive Date: 20191120
  Receipt Date: 20191120
  Transmission Date: 20200122
  Serious: Yes (Hospitalization, Other)
  Sender: FDA-Public Use
  Company Number: NVSC2019KR039983

PATIENT
  Age: 62 Year
  Sex: Female

DRUGS (2)
  1. CYCLOSPORINE. [Suspect]
     Active Substance: CYCLOSPORINE
     Indication: IMMUNOSUPPRESSANT DRUG THERAPY
  2. CYCLOSPORINE. [Suspect]
     Active Substance: CYCLOSPORINE
     Indication: RENAL TRANSPLANT
     Dosage: UNK
     Route: 065

REACTIONS (4)
  - Necrosis [Unknown]
  - Diffuse large B-cell lymphoma [Unknown]
  - Hemiparesis [Recovering/Resolving]
  - Dysarthria [Recovering/Resolving]
